FAERS Safety Report 8044119-5 (Version None)
Quarter: 2012Q1

REPORT INFORMATION
  Report Type: 
  Country: None (occurrence: None)
  Receive Date: 20120113
  Receipt Date: 20120105
  Transmission Date: 20120608
  Serious: Yes (Hospitalization)
  Sender: FDA-Public Use
  Company Number: GB-EISAI INC-E7389-00978-CLI-GB

PATIENT
  Sex: Female
  Weight: 62 kg

DRUGS (4)
  1. EPIRUBICIN HYDROCHLORIDE [Suspect]
     Indication: COLORECTAL CANCER
     Route: 041
     Dates: start: 20100721, end: 20100728
  2. EPIRUBICIN HYDROCHLORIDE [Suspect]
     Route: 016
     Dates: start: 20100818
  3. CAPECITABINE [Concomitant]
     Route: 048
     Dates: start: 20101019, end: 20101019
  4. CAPECITABINE [Concomitant]
     Indication: COLORECTAL CANCER
     Route: 048
     Dates: start: 20100721

REACTIONS (1)
  - NEUTROPENIC SEPSIS [None]
